FAERS Safety Report 11820293 (Version 1)
Quarter: 2015Q4

REPORT INFORMATION
  Report Type: Report from Study
  Country: US (occurrence: US)
  Receive Date: 20151210
  Receipt Date: 20151210
  Transmission Date: 20160305
  Serious: No
  Sender: FDA-Public Use
  Company Number: PHHY2012US131421

PATIENT
  Age: 64 Year
  Sex: Female

DRUGS (30)
  1. LUCENTIS [Suspect]
     Active Substance: RANIBIZUMAB
     Dosage: 0.5 MG, QMO
     Route: 031
     Dates: start: 20130305
  2. AVASTIN [Suspect]
     Active Substance: BEVACIZUMAB
     Dosage: UNK, RIGHT EYE
     Route: 031
     Dates: start: 20120203
  3. NEXIUM [Concomitant]
     Active Substance: ESOMEPRAZOLE MAGNESIUM
     Indication: PRODUCT USED FOR UNKNOWN INDICATION
     Dosage: 1 DF (40 MG), DAILY
     Route: 048
     Dates: start: 20111219
  4. LUCENTIS [Suspect]
     Active Substance: RANIBIZUMAB
     Indication: RETINAL OEDEMA
     Dosage: 0.5 MG, QMO
     Route: 031
     Dates: start: 20121031
  5. AVASTIN [Suspect]
     Active Substance: BEVACIZUMAB
     Dosage: UNK, RIGHT EYE
     Route: 031
     Dates: start: 20120214
  6. LIDOCAINE. [Concomitant]
     Active Substance: LIDOCAINE
     Indication: ANAESTHESIA
     Dosage: UNK
  7. TIMOLOL. [Concomitant]
     Active Substance: TIMOLOL
     Indication: PRODUCT USED FOR UNKNOWN INDICATION
     Dosage: 1 GTT, 2 IN 1 D (OU)
     Route: 047
     Dates: start: 20121219
  8. LIPITOR [Concomitant]
     Active Substance: ATORVASTATIN CALCIUM
     Indication: PRODUCT USED FOR UNKNOWN INDICATION
     Dosage: 2 DF (80 MG), DAILY
     Route: 065
     Dates: start: 20111219
  9. NEO-SYNEPHRINE [Concomitant]
     Active Substance: PHENYLEPHRINE HYDROCHLORIDE
     Indication: PRODUCT USED FOR UNKNOWN INDICATION
     Route: 047
  10. VISUDYNE [Concomitant]
     Active Substance: VERTEPORFIN
     Indication: PRODUCT USED FOR UNKNOWN INDICATION
     Dosage: UNK
     Route: 065
  11. LUCENTIS [Suspect]
     Active Substance: RANIBIZUMAB
     Dosage: 0.5 MG, QMO
     Route: 031
     Dates: start: 20121212
  12. LUCENTIS [Suspect]
     Active Substance: RANIBIZUMAB
     Dosage: 0.5 MG, QMO
     Route: 031
     Dates: start: 20130405
  13. AVASTIN [Suspect]
     Active Substance: BEVACIZUMAB
     Dosage: UNK, RIGHT EYE
     Route: 031
     Dates: start: 20120518
  14. ASPIRIN. [Concomitant]
     Active Substance: ASPIRIN
     Indication: PRODUCT USED FOR UNKNOWN INDICATION
     Dosage: 1 DF, DAILY
     Route: 048
     Dates: start: 20111219
  15. AVASTIN [Suspect]
     Active Substance: BEVACIZUMAB
     Dosage: UNK, RIGHT EYE
     Route: 031
     Dates: start: 20111223
  16. AVASTIN [Suspect]
     Active Substance: BEVACIZUMAB
     Dosage: UNK, RIGHT EYE
     Route: 031
     Dates: end: 20120810
  17. LUCENTIS [Suspect]
     Active Substance: RANIBIZUMAB
     Indication: NEOVASCULAR AGE-RELATED MACULAR DEGENERATION
     Dosage: 0.5 MG, QMO
     Route: 031
     Dates: start: 20120924
  18. AVASTIN [Suspect]
     Active Substance: BEVACIZUMAB
     Dosage: UNK, RIGHT EYE
     Route: 031
     Dates: start: 20120518
  19. HYDROCHLOROTHIAZIDE. [Concomitant]
     Active Substance: HYDROCHLOROTHIAZIDE
     Indication: PRODUCT USED FOR UNKNOWN INDICATION
     Dosage: 1 DF (12.5 MG), DAILY
     Route: 048
  20. DECADRON [Concomitant]
     Active Substance: DEXAMETHASONE
     Indication: PRODUCT USED FOR UNKNOWN INDICATION
     Dosage: UNK
     Route: 065
     Dates: start: 20110528
  21. LUCENTIS [Suspect]
     Active Substance: RANIBIZUMAB
     Dosage: 0.5 MG, QMO
     Route: 031
     Dates: start: 20130123
  22. TIMOLOL. [Concomitant]
     Active Substance: TIMOLOL
     Dosage: 1 GTT, 2 IN 1 D (OU)
     Dates: start: 20130405
  23. FISH OIL [Concomitant]
     Active Substance: FISH OIL
     Indication: PRODUCT USED FOR UNKNOWN INDICATION
     Dosage: 1 DF (300 MG), DAILY
     Route: 048
     Dates: start: 20111219
  24. ENALAPRIL MALEATE. [Concomitant]
     Active Substance: ENALAPRIL MALEATE
     Indication: PRODUCT USED FOR UNKNOWN INDICATION
     Dosage: 1 DF (20 MG), DAILY
     Route: 048
     Dates: start: 20111219
  25. LUCENTIS [Suspect]
     Active Substance: RANIBIZUMAB
     Dosage: 0.5 MG, QMO
     Route: 031
     Dates: start: 20121212
  26. AVASTIN [Suspect]
     Active Substance: BEVACIZUMAB
     Indication: NEOVASCULAR AGE-RELATED MACULAR DEGENERATION
     Dosage: UNK, RIGHT EYE
     Route: 031
     Dates: start: 20111028
  27. AVASTIN [Suspect]
     Active Substance: BEVACIZUMAB
     Dosage: UNK, RIGHT EYE
     Route: 031
     Dates: start: 20120307
  28. NAPROXEN. [Suspect]
     Active Substance: NAPROXEN
     Indication: PRODUCT USED FOR UNKNOWN INDICATION
     Dosage: 500 MG, BID
     Route: 048
     Dates: start: 20111219
  29. METFORMIN [Concomitant]
     Active Substance: METFORMIN HYDROCHLORIDE
     Indication: PRODUCT USED FOR UNKNOWN INDICATION
     Dosage: 2 DF (1000 MG), DAILY
     Route: 048
     Dates: start: 20111219
  30. MYDRIACYL [Concomitant]
     Active Substance: TROPICAMIDE
     Indication: PRODUCT USED FOR UNKNOWN INDICATION
     Dosage: UNK
     Route: 047

REACTIONS (11)
  - Weight decreased [Unknown]
  - Posterior capsule opacification [Unknown]
  - Back pain [Unknown]
  - Headache [Unknown]
  - Vitreous floaters [Unknown]
  - Seasonal allergy [Unknown]
  - Vitreous degeneration [Unknown]
  - Vision blurred [Unknown]
  - Macular fibrosis [Unknown]
  - Macular degeneration [Unknown]
  - Off label use [Unknown]

NARRATIVE: CASE EVENT DATE: 20121031
